FAERS Safety Report 10078470 (Version 2)
Quarter: 2014Q2

REPORT INFORMATION
  Report Type: Spontaneous
  Country: US (occurrence: US)
  Receive Date: 20140415
  Receipt Date: 20140415
  Transmission Date: 20141212
  Serious: Yes (Hospitalization)
  Sender: FDA-Public Use
  Company Number: US-SA-CERZ-1003125

PATIENT
  Age: 19 Year
  Sex: Female
  Weight: 37 kg

DRUGS (1)
  1. CEREZYME [Suspect]
     Indication: GAUCHER^S DISEASE
     Dosage: 108 MG/KG, Q2W
     Route: 042

REACTIONS (5)
  - Pneumonia [Unknown]
  - Deep vein thrombosis [Unknown]
  - Papule [Unknown]
  - Pain in extremity [Unknown]
  - Rash pruritic [Unknown]
